FAERS Safety Report 5359169-7 (Version None)
Quarter: 2007Q2

REPORT INFORMATION
  Report Type: 
  Country: None (occurrence: None)
  Receive Date: 20070615
  Receipt Date: 20070406
  Transmission Date: 20071010
  Serious: Yes (Death, Hospitalization)
  Sender: FDA-Public Use
  Company Number: JP-ROCHE-474801

PATIENT
  Age: 64 Year
  Sex: Male

DRUGS (2)
  1. ROCEPHIN [Suspect]
     Indication: PNEUMONIA
     Route: 041
     Dates: start: 20060508, end: 20060509
  2. ROCEPHIN [Suspect]
     Dosage: STRENGHT REPORTED AS 1G BAG. ROUTE: INTRAVENOUS (NOT OTHERWISE SPECIFIED). DOSAGE REGIMEN REPORTED +
     Route: 041
     Dates: start: 20060801

REACTIONS (2)
  - ATRIOVENTRICULAR BLOCK COMPLETE [None]
  - HEPATITIS FULMINANT [None]
